FAERS Safety Report 18124053 (Version 3)
Quarter: 2020Q3

REPORT INFORMATION
  Report Type: Spontaneous
  Country: US (occurrence: US)
  Receive Date: 20200807
  Receipt Date: 20200923
  Transmission Date: 20201103
  Serious: No
  Sender: FDA-Public Use
  Company Number: US-PFIZER INC-2020289361

PATIENT
  Sex: Male

DRUGS (2)
  1. CAVERJECT IMPULSE [Suspect]
     Active Substance: ALPROSTADIL
     Dosage: 10 UG
     Dates: start: 2000
  2. CAVERJECT IMPULSE [Suspect]
     Active Substance: ALPROSTADIL
     Dosage: 20 UG

REACTIONS (3)
  - Product administration error [Unknown]
  - Product storage error [Unknown]
  - Drug ineffective [Unknown]
